FAERS Safety Report 18860489 (Version 1)
Quarter: 2021Q1

REPORT INFORMATION
  Report Type: Spontaneous
  Country: NO (occurrence: NO)
  Receive Date: 20210208
  Receipt Date: 20210208
  Transmission Date: 20210420
  Serious: Yes (Death)
  Sender: FDA-Public Use
  Company Number: NO-009507513-2102NOR000816

PATIENT
  Age: 72 Year
  Sex: Male

DRUGS (3)
  1. KEYTRUDA [Suspect]
     Active Substance: PEMBROLIZUMAB
     Indication: LUNG NEOPLASM MALIGNANT
     Dosage: 200 MILLIGRAM; STRENGTH: 25 MG/ML; DOSAGE FORM: CONCENTRATE FOR INFUSION
     Route: 042
     Dates: start: 20201216, end: 20201216
  2. CARBOPLATIN ACCORD [Suspect]
     Active Substance: CARBOPLATIN
     Indication: LUNG NEOPLASM MALIGNANT
     Dosage: AUC=6 MG*MIN/ML; STRENGTH: 10 MG/ML; DOSAGE FORM: CONCENTRATE FOR INFUSION
     Route: 042
     Dates: start: 20201216, end: 20201216
  3. PACLITAXEL. [Suspect]
     Active Substance: PACLITAXEL
     Indication: LUNG NEOPLASM MALIGNANT
     Dosage: 200 MG/M2; STRENGTH: 6 MG/ML; DOSAGE FORM: CONCENTRATE FOR INFUSION
     Route: 042
     Dates: start: 20201216, end: 20201216

REACTIONS (3)
  - Nephritis [Fatal]
  - Myocarditis [Fatal]
  - Hepatitis [Fatal]

NARRATIVE: CASE EVENT DATE: 20210106
